FAERS Safety Report 13280039 (Version 2)
Quarter: 2017Q1

REPORT INFORMATION
  Report Type: Spontaneous
  Country: SA (occurrence: SA)
  Receive Date: 20170301
  Receipt Date: 20170301
  Transmission Date: 20170428
  Serious: Yes (Death, Hospitalization)
  Sender: FDA-Public Use
  Company Number: SA-CIPLA LTD.-2017SA02273

PATIENT

DRUGS (24)
  1. CARVEDILOL. [Suspect]
     Active Substance: CARVEDILOL
     Indication: CUSHING^S SYNDROME
     Dosage: UNK, UPTO 25MG/DAY
     Route: 065
  2. VITAMIN D3 [Concomitant]
     Active Substance: CHOLECALCIFEROL
     Dosage: 2000 UNITS, UNK
     Route: 065
  3. SPIRONOLACTONE. [Suspect]
     Active Substance: SPIRONOLACTONE
     Dosage: 100 MG, PER DAY, DECREASED ON DAY 41
     Route: 065
  4. MIFEPRISTONE [Suspect]
     Active Substance: MIFEPRISTONE
     Indication: CUSHING^S SYNDROME
     Dosage: 300 MG, PER DAY, STARTED ON DAY 20
     Route: 065
  5. INSULIN [Concomitant]
     Active Substance: INSULIN NOS
     Dosage: UNK, UP TO 87 U/D, ESCALATING DOSES
     Route: 065
  6. INSULIN [Concomitant]
     Active Substance: INSULIN NOS
     Dosage: UNK, REDUCED DOSE ON DAY 27
     Route: 065
  7. AMLODIPINE [Suspect]
     Active Substance: AMLODIPINE BESYLATE
     Dosage: UNK, TAPERED
     Route: 065
  8. SPIRONOLACTONE. [Suspect]
     Active Substance: SPIRONOLACTONE
     Indication: CUSHING^S SYNDROME
     Dosage: UNK, UPTO 450 MG/DAY
     Route: 065
  9. MIFEPRISTONE [Suspect]
     Active Substance: MIFEPRISTONE
     Dosage: 200 MG, PER DAY, RESTARTED ON DAY 34
     Route: 065
  10. INSULIN [Concomitant]
     Active Substance: INSULIN NOS
     Indication: CUSHING^S SYNDROME
     Dosage: UNK
     Route: 065
  11. SORAFENIB [Suspect]
     Active Substance: SORAFENIB
     Dosage: 400 MG, BID, STARTED ON DAY 10
     Route: 065
  12. MIFEPRISTONE [Suspect]
     Active Substance: MIFEPRISTONE
     Dosage: 100 MG, PER DAY, DECREASED AFTER 7 DAYS
     Route: 065
  13. INSULIN [Concomitant]
     Active Substance: INSULIN NOS
     Dosage: UNK, FURTHER TAPERED ON DAY 34
     Route: 065
  14. AMLODIPINE [Suspect]
     Active Substance: AMLODIPINE BESYLATE
     Indication: CUSHING^S SYNDROME
     Dosage: UNK, UPTO 10 MG/DAY
     Route: 065
  15. CARVEDILOL. [Suspect]
     Active Substance: CARVEDILOL
     Dosage: UNK, TAPERED
     Route: 065
  16. CEFTRIAXONE. [Suspect]
     Active Substance: CEFTRIAXONE
     Indication: STREPTOCOCCAL INFECTION
     Dosage: UNK
     Route: 065
  17. DEXAMETHASONE. [Suspect]
     Active Substance: DEXAMETHASONE
     Indication: ADRENAL INSUFFICIENCY
     Dosage: 8 MG, PER DAY, STARTED ON DAY 27, GIVEN FOR 5 DAYS
     Route: 042
  18. DESMOPRESSIN [Suspect]
     Active Substance: DESMOPRESSIN
     Indication: DIABETES INSIPIDUS
     Dosage: 40 ?G, PER DAY, INTRANASAL
     Route: 045
  19. ENOXAPARIN [Suspect]
     Active Substance: ENOXAPARIN
     Dosage: 40 MG, PER DAY
     Route: 065
  20. VANCOMYCIN [Suspect]
     Active Substance: VANCOMYCIN
     Indication: STREPTOCOCCAL INFECTION
     Dosage: UNK
     Route: 065
  21. AMLODIPINE [Suspect]
     Active Substance: AMLODIPINE BESYLATE
     Dosage: UNK, REDUCED DOSE ON DAY 27
     Route: 065
  22. DEXAMETHASONE. [Suspect]
     Active Substance: DEXAMETHASONE
     Dosage: UNK
     Route: 042
  23. CALCIUM CARBONATE. [Concomitant]
     Active Substance: CALCIUM CARBONATE
     Dosage: 1200 MG, DAILY
     Route: 065
  24. LEVOTHYROXINE. [Concomitant]
     Active Substance: LEVOTHYROXINE
     Dosage: 150 ?G, UNK
     Route: 065

REACTIONS (9)
  - Intussusception [Unknown]
  - Autonomic nervous system imbalance [Unknown]
  - Cardio-respiratory arrest [Fatal]
  - Adrenal insufficiency [Unknown]
  - Liver function test abnormal [Unknown]
  - Hepatomegaly [Unknown]
  - Streptococcal infection [Unknown]
  - Muscular weakness [Unknown]
  - Pleural effusion [Unknown]
